FAERS Safety Report 9791473 (Version 4)
Quarter: 2014Q1

REPORT INFORMATION
  Report Type: Spontaneous
  Country: JP (occurrence: JP)
  Receive Date: 20140101
  Receipt Date: 20140305
  Transmission Date: 20141002
  Serious: Yes (Death, Life-Threatening, Hospitalization, Other)
  Sender: FDA-Public Use
  Company Number: PHHY2013JP127006

PATIENT
  Age: 68 Year
  Sex: Male
  Weight: 63 kg

DRUGS (14)
  1. GLIVEC [Suspect]
     Indication: GASTROINTESTINAL STROMAL TUMOUR
     Dosage: 300 MG, DAILY
     Route: 048
     Dates: start: 20130925, end: 20131101
  2. MOSAPRIDE CITRATE [Concomitant]
     Dosage: 15 MG, UNK
     Route: 048
     Dates: end: 20131101
  3. LANSOPRAZOL [Concomitant]
     Dosage: 15 MG, UNK
     Route: 048
     Dates: end: 20131101
  4. TREBIANOM [Concomitant]
     Dosage: 50 MG, UNK
     Route: 048
     Dates: end: 20131101
  5. NIFELANTERIN CR [Concomitant]
     Dosage: 20 MG, UNK
     Route: 048
     Dates: end: 20131101
  6. OLMETEC [Concomitant]
     Dosage: 10 MG, UNK
     Route: 048
     Dates: end: 20131202
  7. PREDONINE [Concomitant]
     Dosage: 60 MG, QD
     Route: 048
     Dates: start: 20131105, end: 20131221
  8. EQUA [Concomitant]
     Dosage: UNK UKN, UNK
     Route: 048
  9. BAKTAR [Concomitant]
     Dosage: UNK UKN, UNK
     Route: 048
  10. RECALBON [Concomitant]
     Route: 048
  11. LENDORMIN [Concomitant]
     Route: 048
  12. ARGAMATE [Concomitant]
     Dosage: UNK UKN, UNK
     Route: 048
  13. WARFARIN [Concomitant]
     Dosage: UNK UKN, UNK
     Route: 048
  14. ASPARA-CA [Concomitant]
     Dosage: UNK UKN, UNK

REACTIONS (11)
  - Pulmonary alveolar haemorrhage [Fatal]
  - Respiratory failure [Fatal]
  - Oedema peripheral [Fatal]
  - Malaise [Fatal]
  - Dyspnoea [Fatal]
  - Haemoptysis [Fatal]
  - Pulmonary congestion [Fatal]
  - Interstitial lung disease [Fatal]
  - Pneumonia bacterial [Unknown]
  - Pneumonia cytomegaloviral [Unknown]
  - Weight increased [Recovered/Resolved]
